FAERS Safety Report 11745479 (Version 1)
Quarter: 2015Q4

REPORT INFORMATION
  Report Type: Spontaneous
  Country: US (occurrence: None)
  Receive Date: 20151116
  Receipt Date: 20151116
  Transmission Date: 20160304
  Serious: Yes (Hospitalization, Other)
  Sender: FDA-Public Use
  Company Number: None

PATIENT
  Age: 76 Year
  Sex: Female
  Weight: 61.24 kg

DRUGS (15)
  1. METOPROLOL [Concomitant]
     Active Substance: METOPROLOL
  2. MULTIVITAMIN [Concomitant]
     Active Substance: VITAMINS
  3. MIRALAX [Concomitant]
     Active Substance: POLYETHYLENE GLYCOL 3350
  4. ZOCOR [Concomitant]
     Active Substance: SIMVASTATIN
  5. OMEPRAZOLE. [Concomitant]
     Active Substance: OMEPRAZOLE
  6. XANAX [Concomitant]
     Active Substance: ALPRAZOLAM
  7. POTASSIUM [Concomitant]
     Active Substance: POTASSIUM
  8. XARELTO [Concomitant]
     Active Substance: RIVAROXABAN
  9. VALSARTAN. [Concomitant]
     Active Substance: VALSARTAN
  10. LEVOTHYROXINE. [Concomitant]
     Active Substance: LEVOTHYROXINE
  11. MYCOPHENOLATE MOFETIL. [Concomitant]
     Active Substance: MYCOPHENOLATE MOFETIL
  12. AMIODARONE HCL [Suspect]
     Active Substance: AMIODARONE HYDROCHLORIDE
     Indication: ATRIAL FIBRILLATION
     Dosage: BY MOUTH
     Dates: start: 20140616, end: 20140815
  13. CALCIUM [Concomitant]
     Active Substance: CALCIUM
  14. FUROSEMIDE. [Concomitant]
     Active Substance: FUROSEMIDE
  15. CLOBETASOL CREAM [Concomitant]
     Active Substance: CLOBETASOL

REACTIONS (5)
  - Hypoaesthesia [None]
  - Grip strength decreased [None]
  - Dysgraphia [None]
  - Coordination abnormal [None]
  - Paraesthesia [None]

NARRATIVE: CASE EVENT DATE: 201407
